FAERS Safety Report 5114018-7 (Version None)
Quarter: 2006Q3

REPORT INFORMATION
  Report Type: 
  Country: None (occurrence: None)
  Receive Date: 20060921
  Receipt Date: 20060918
  Transmission Date: 20061208
  Serious: Yes (Hospitalization)
  Sender: FDA-Public Use
  Company Number: TPA2005A01699

PATIENT
  Age: 50 Year
  Sex: Male
  Weight: 96.1626 kg

DRUGS (10)
  1. ACTOS [Suspect]
     Indication: DIABETES MELLITUS NON-INSULIN-DEPENDENT
     Dosage: 45 MG, 1 IN 1 D, PER ORAL
     Route: 048
     Dates: start: 20031220
  2. PRECOSE [Concomitant]
  3. PLAVIX [Concomitant]
  4. METFORMIN HCL [Concomitant]
  5. ACCUPRIL [Concomitant]
  6. GLUCOTROL XL [Concomitant]
  7. TOPROL-XL [Concomitant]
  8. ZETIA [Concomitant]
  9. ASPIRIN [Concomitant]
  10. XALATAN [Concomitant]

REACTIONS (2)
  - ARTERIAL OCCLUSIVE DISEASE [None]
  - CYST [None]
